FAERS Safety Report 25857200 (Version 2)
Quarter: 2025Q4

REPORT INFORMATION
  Report Type: Spontaneous
  Country: US (occurrence: US)
  Receive Date: 20250929
  Receipt Date: 20251022
  Transmission Date: 20260117
  Serious: No
  Sender: BAUSCH AND LOMB
  Company Number: US-BAUSCHBL-2025BNL029211

PATIENT
  Sex: Female

DRUGS (1)
  1. XIIDRA [Suspect]
     Active Substance: LIFITEGRAST
     Indication: Dry eye
     Dosage: 1 DROP EACH EYE TWO TIMES A DAY
     Dates: start: 202508, end: 202509

REACTIONS (5)
  - Sinus pain [Recovered/Resolved]
  - Ear pain [Recovered/Resolved]
  - Taste disorder [Recovering/Resolving]
  - Oropharyngeal pain [Recovering/Resolving]
  - Throat irritation [Recovering/Resolving]

NARRATIVE: CASE EVENT DATE: 20250901
